FAERS Safety Report 14779040 (Version 2)
Quarter: 2018Q4

REPORT INFORMATION
  Report Type: Report from Study
  Country: CA (occurrence: CA)
  Receive Date: 20180419
  Receipt Date: 20181217
  Transmission Date: 20190204
  Serious: Yes (Life-Threatening, Hospitalization)
  Sender: FDA-Public Use
  Company Number: CA-ASTRAZENECA-2016SF32266

PATIENT
  Age: 58 Year
  Sex: Male

DRUGS (15)
  1. ACETAMINOPHEN. [Concomitant]
     Active Substance: ACETAMINOPHEN
     Indication: ARTHRALGIA
     Dosage: 650.0MG AS REQUIRED
     Dates: start: 20161211, end: 20161213
  2. ROBITUSSIN (GUAIFENESIN) [Concomitant]
     Active Substance: GUAIFENESIN
     Indication: COUGH
     Dosage: 15.0ML AS REQUIRED
     Dates: start: 20161114
  3. RANITIDINE. [Concomitant]
     Active Substance: RANITIDINE
     Indication: COUGH
     Dates: start: 20161114
  4. ACETAMINOPHEN. [Concomitant]
     Active Substance: ACETAMINOPHEN
     Indication: ARTHRALGIA
     Dosage: 500.0MG AS REQUIRED
     Dates: start: 20161012
  5. MODAFINIL. [Concomitant]
     Active Substance: MODAFINIL
     Indication: FATIGUE
     Dosage: 100.0MG AS REQUIRED
     Dates: start: 201601
  6. METOCLOPRAMIDE. [Concomitant]
     Active Substance: METOCLOPRAMIDE
     Indication: GASTROOESOPHAGEAL REFLUX DISEASE
     Dosage: 10.0MG AS REQUIRED
     Dates: start: 201606
  7. METOCLOPRAMIDE. [Concomitant]
     Active Substance: METOCLOPRAMIDE
     Indication: GASTROOESOPHAGEAL REFLUX DISEASE
     Dosage: 5-10 MG, EVERY 3 HOURS AS NEEDED AS REQUIRED
     Dates: start: 20161211
  8. ACETAMINOPHEN. [Concomitant]
     Active Substance: ACETAMINOPHEN
     Indication: ARTHRALGIA
     Dosage: 650 MG, EVERY 6 HOURS AS NEEDED AS REQUIRED
     Dates: start: 20161205
  9. ACALABRUTINIB. [Suspect]
     Active Substance: ACALABRUTINIB
     Indication: CHRONIC LYMPHOCYTIC LEUKAEMIA
     Route: 048
     Dates: start: 20160921, end: 20161204
  10. ACALABRUTINIB. [Suspect]
     Active Substance: ACALABRUTINIB
     Indication: CHRONIC LYMPHOCYTIC LEUKAEMIA
     Route: 048
     Dates: start: 20161205, end: 20161205
  11. AERIUS [Concomitant]
     Indication: URTICARIA
     Dosage: 1.0DF AS REQUIRED
     Dates: start: 201606
  12. TYLENOL [Concomitant]
     Active Substance: ACETAMINOPHEN
     Indication: PYREXIA
     Dosage: 1-2 PILLS, AS NEEDED
     Dates: start: 20161114
  13. BETA DERM [Concomitant]
     Indication: ECZEMA
     Dosage: 0.2% AS REQUIRED
     Dates: start: 1990
  14. PRED FORTE [Concomitant]
     Active Substance: PREDNISOLONE ACETATE
     Indication: IRIDOCYCLITIS
     Dates: start: 201208
  15. VITAMIN D [Concomitant]
     Active Substance: CHOLECALCIFEROL
     Indication: SUPPLEMENTATION THERAPY
     Dates: start: 2000

REACTIONS (1)
  - Haemophagocytic lymphohistiocytosis [Not Recovered/Not Resolved]

NARRATIVE: CASE EVENT DATE: 20161205
